FAERS Safety Report 22187146 (Version 1)
Quarter: 2023Q2

REPORT INFORMATION
  Report Type: Spontaneous
  Country: US (occurrence: None)
  Receive Date: 20230407
  Receipt Date: 20230407
  Transmission Date: 20230722
  Serious: Yes (Hospitalization)
  Sender: FDA-Public Use
  Company Number: None

PATIENT
  Sex: Male

DRUGS (1)
  1. TALTZ [Suspect]
     Active Substance: IXEKIZUMAB
     Indication: Psoriasis
     Dosage: FREQUENCY : MONTHLY;?
     Route: 058
     Dates: start: 202210

REACTIONS (15)
  - Adverse drug reaction [None]
  - Rash [None]
  - Alopecia [None]
  - Gastrointestinal disorder [None]
  - Acne [None]
  - Emotional distress [None]
  - Scar [None]
  - Candida infection [None]
  - Abnormal loss of weight [None]
  - Diarrhoea [None]
  - Haematochezia [None]
  - Drug ineffective [None]
  - Pruritus [None]
  - Burning sensation [None]
  - Pain [None]
